FAERS Safety Report 16616199 (Version 1)
Quarter: 2019Q3

REPORT INFORMATION
  Report Type: Report from Study
  Country: FR (occurrence: FR)
  Receive Date: 20190723
  Receipt Date: 20190723
  Transmission Date: 20191004
  Serious: Yes (Death, Other)
  Sender: FDA-Public Use
  Company Number: FR-ROCHE-2360067

PATIENT

DRUGS (4)
  1. HEPARIN [Suspect]
     Active Substance: HEPARIN SODIUM
     Indication: PROSTHETIC CARDIAC VALVE THROMBOSIS
     Route: 042
  2. ALTEPLASE. [Suspect]
     Active Substance: ALTEPLASE
     Indication: PROSTHETIC CARDIAC VALVE THROMBOSIS
     Route: 042
  3. UROKINASE [Suspect]
     Active Substance: UROKINASE
     Indication: PROSTHETIC CARDIAC VALVE THROMBOSIS
     Route: 065
  4. STREPTOKINASE [Suspect]
     Active Substance: STREPTOKINASE
     Indication: PROSTHETIC CARDIAC VALVE THROMBOSIS
     Route: 065

REACTIONS (7)
  - Haemorrhage [Unknown]
  - Transient ischaemic attack [Unknown]
  - Cerebral haemorrhage [Fatal]
  - Arterial haemorrhage [Fatal]
  - Treatment failure [Fatal]
  - Cerebrovascular accident [Fatal]
  - Peripheral embolism [Unknown]
